FAERS Safety Report 19373092 (Version 1)
Quarter: 2021Q2

REPORT INFORMATION
  Report Type: Spontaneous
  Country: US (occurrence: US)
  Receive Date: 20210604
  Receipt Date: 20210604
  Transmission Date: 20210717
  Serious: No
  Sender: FDA-Public Use
  Company Number: US-AMGEN-USASP2021082779

PATIENT
  Sex: Female

DRUGS (1)
  1. REPATHA [Suspect]
     Active Substance: EVOLOCUMAB
     Indication: BLOOD CHOLESTEROL INCREASED
     Dosage: 140 MILLIGRAM, Q2WK
     Route: 065

REACTIONS (8)
  - Depression [Unknown]
  - Nausea [Unknown]
  - Nightmare [Unknown]
  - Memory impairment [Unknown]
  - Anxiety [Unknown]
  - Arthralgia [Unknown]
  - Fatigue [Unknown]
  - Rash [Unknown]
